FAERS Safety Report 8885064 (Version 1)
Quarter: 2012Q4

REPORT INFORMATION
  Report Type: 
  Country: US (occurrence: US)
  Receive Date: 20121102
  Receipt Date: 20121102
  Transmission Date: 20130627
  Serious: No
  Sender: FDA-Public Use
  Company Number: US-PFIZER INC-2012272981

PATIENT
  Age: 36 Year
  Sex: Female
  Weight: 83.9 kg

DRUGS (2)
  1. LYRICA [Suspect]
     Indication: FIBROMYALGIA
     Dosage: UNK, 2x/day
     Route: 048
     Dates: start: 201003
  2. LYRICA [Suspect]
     Dosage: 50 mg, 2x/day
     Route: 048

REACTIONS (5)
  - Malaise [Unknown]
  - Migraine [Unknown]
  - Nausea [Unknown]
  - Oedema peripheral [Unknown]
  - Oedema peripheral [Unknown]
